FAERS Safety Report 8273449-7 (Version None)
Quarter: 2012Q2

REPORT INFORMATION
  Report Type: 
  Country: None (occurrence: None)
  Receive Date: 20120409
  Receipt Date: 20120409
  Transmission Date: 20120825
  Serious: Yes (Hospitalization)
  Sender: FDA-Public Use
  Company Number: None

PATIENT
  Age: 62 Year
  Sex: Female
  Weight: 118.1 kg

DRUGS (1)
  1. PRAVASTATIN [Suspect]
     Indication: HYPERLIPIDAEMIA
     Dosage: 1/2 TAB EVERY DAY PO
     Route: 048
     Dates: start: 20110723, end: 20111203

REACTIONS (3)
  - PNEUMONIA [None]
  - RHABDOMYOLYSIS [None]
  - ASTHENIA [None]
